FAERS Safety Report 24940371 (Version 1)
Quarter: 2025Q1

REPORT INFORMATION
  Report Type: Report from Study
  Country: GB (occurrence: GB)
  Receive Date: 20250207
  Receipt Date: 20250207
  Transmission Date: 20250409
  Serious: Yes (Hospitalization)
  Sender: ABBVIE
  Company Number: GB-ABBVIE-6119172

PATIENT
  Age: 26 Year
  Sex: Male

DRUGS (3)
  1. RINVOQ [Suspect]
     Active Substance: UPADACITINIB
     Indication: Dermatitis atopic
     Route: 048
     Dates: start: 20240722
  2. LYMECYCLINE [Concomitant]
     Active Substance: LYMECYCLINE
     Indication: Hidradenitis
     Route: 048
     Dates: start: 20210913
  3. FOLIC ACID [Concomitant]
     Active Substance: FOLIC ACID
     Indication: Blood folate decreased
     Route: 048
     Dates: start: 20240311

REACTIONS (2)
  - Pain in extremity [Recovered/Resolved]
  - Gastroenteritis [Recovered/Resolved]

NARRATIVE: CASE EVENT DATE: 20241025
